FAERS Safety Report 21064312 (Version 2)
Quarter: 2022Q3

REPORT INFORMATION
  Report Type: Spontaneous
  Country: JP (occurrence: JP)
  Receive Date: 20220711
  Receipt Date: 20220803
  Transmission Date: 20221027
  Serious: Yes (Other)
  Sender: FDA-Public Use
  Company Number: JP-BAXTER-2022BAX013734

PATIENT
  Sex: Male

DRUGS (3)
  1. SUPRANE [Suspect]
     Active Substance: DESFLURANE
     Indication: General anaesthesia
     Dosage: UNK
     Dates: start: 20220701, end: 20220701
  2. PROPOFOL [Suspect]
     Active Substance: PROPOFOL
     Indication: General anaesthesia
     Dosage: UNK
     Route: 042
     Dates: start: 20220701, end: 20220701
  3. REMIFENTANIL [Suspect]
     Active Substance: REMIFENTANIL
     Indication: General anaesthesia
     Dosage: UNK
     Route: 042
     Dates: start: 20220701, end: 20220701

REACTIONS (2)
  - Anaphylactic reaction [Recovered/Resolved]
  - Blood pressure decreased [Recovered/Resolved]

NARRATIVE: CASE EVENT DATE: 20220701
